FAERS Safety Report 13820649 (Version 1)
Quarter: 2017Q3

REPORT INFORMATION
  Report Type: Spontaneous
  Country: US (occurrence: US)
  Receive Date: 20170801
  Receipt Date: 20170801
  Transmission Date: 20171127
  Serious: No
  Sender: FDA-Public Use
  Company Number: US-TEVA-760362ACC

PATIENT
  Age: 43 Year
  Sex: Female

DRUGS (1)
  1. EQ NICOTINE GUM COATED ICE MINT 4MG, 100CT (C2 NICORETTE) [Suspect]
     Active Substance: NICOTINE
     Indication: SMOKING CESSATION THERAPY
     Dosage: 4 PIECES
     Route: 065
     Dates: start: 20170410, end: 20170411

REACTIONS (1)
  - Drug ineffective [Unknown]

NARRATIVE: CASE EVENT DATE: 20170410
